FAERS Safety Report 5916877-4 (Version None)
Quarter: 2008Q4

REPORT INFORMATION
  Report Type: 
  Country: None (occurrence: None)
  Receive Date: 20081013
  Receipt Date: 20081002
  Transmission Date: 20090506
  Serious: Yes (Life-Threatening, Hospitalization)
  Sender: FDA-Public Use
  Company Number: CH-ROCHE-589159

PATIENT
  Sex: Male
  Weight: 71 kg

DRUGS (2)
  1. METHOXY POLYETHYLENE GLYCOL-EPOETIN BETA [Suspect]
     Dosage: UNIT: YG.
     Route: 042
     Dates: start: 20071203, end: 20081002
  2. EPOETIN NOS [Concomitant]

REACTIONS (1)
  - PANCREATITIS ACUTE [None]
